FAERS Safety Report 12550388 (Version 1)
Quarter: 2016Q3

REPORT INFORMATION
  Report Type: Spontaneous
  Country: US (occurrence: US)
  Receive Date: 20160712
  Receipt Date: 20160712
  Transmission Date: 20161109
  Serious: No
  Sender: FDA-Public Use
  Company Number: US-UNIQUE PHARMACEUTICAL LABORATORIES-2016RIS00051

PATIENT
  Sex: Female

DRUGS (1)
  1. DICLOFENAC SODIUM DELAYED-RELEASE TABLETS USP 75MG [Suspect]
     Active Substance: DICLOFENAC SODIUM

REACTIONS (1)
  - Rosacea [Unknown]
